FAERS Safety Report 7955389-3 (Version None)
Quarter: 2011Q4

REPORT INFORMATION
  Report Type: 
  Country: None (occurrence: None)
  Receive Date: 20111202
  Receipt Date: 20111129
  Transmission Date: 20120403
  Serious: Yes (Hospitalization, Congenital Anomaly)
  Sender: FDA-Public Use
  Company Number: US-BIOMARINP-002151

PATIENT
  Sex: Male

DRUGS (2)
  1. KUVAN [Suspect]
     Indication: FOETAL EXPOSURE DURING PREGNANCY
     Route: 064
  2. KUVAN [Suspect]
     Route: 063

REACTIONS (1)
  - DUODENAL ATRESIA [None]
